FAERS Safety Report 12168532 (Version 5)
Quarter: 2016Q4

REPORT INFORMATION
  Report Type: Spontaneous
  Country: US (occurrence: US)
  Receive Date: 20160310
  Receipt Date: 20161011
  Transmission Date: 20170207
  Serious: Yes (Other)
  Sender: FDA-Public Use
  Company Number: US-ACTELION PHARMACEUTICALS US, INC.-A-NJ2016-131502

PATIENT
  Age: 44 Year
  Sex: Female
  Weight: 70 kg

DRUGS (7)
  1. OPSUMIT [Suspect]
     Active Substance: MACITENTAN
     Indication: PULMONARY ARTERIAL HYPERTENSION
     Dosage: 10 MG, QD
     Route: 048
     Dates: start: 20150720, end: 20160211
  2. LISINOPRIL. [Concomitant]
     Active Substance: LISINOPRIL
  3. REMODULIN [Concomitant]
     Active Substance: TREPROSTINIL
     Dosage: 43 NG/KG, PER MIN
     Dates: start: 20091214
  4. SILDENAFIL. [Concomitant]
     Active Substance: SILDENAFIL
  5. WARFARIN [Concomitant]
     Active Substance: WARFARIN
  6. SIMVASTATIN. [Concomitant]
     Active Substance: SIMVASTATIN
  7. DIGOXIN. [Concomitant]
     Active Substance: DIGOXIN

REACTIONS (4)
  - Cervical incompetence [Recovered/Resolved]
  - Pregnancy [Recovered/Resolved]
  - Uterine dilation and evacuation [Recovered/Resolved]
  - Premature labour [Recovered/Resolved]

NARRATIVE: CASE EVENT DATE: 201512
